FAERS Safety Report 16736791 (Version 1)
Quarter: 2019Q3

REPORT INFORMATION
  Report Type: Spontaneous
  Country: JP (occurrence: JP)
  Receive Date: 20190823
  Receipt Date: 20190823
  Transmission Date: 20191005
  Serious: Yes (Other)
  Sender: FDA-Public Use
  Company Number: JP-EYEVANCE PHARMACEUTICALS-2019EYE00039

PATIENT

DRUGS (1)
  1. FLUOROMETHOLONE. [Suspect]
     Active Substance: FLUOROMETHOLONE
     Dosage: 0.1 %
     Route: 047

REACTIONS (1)
  - Acanthamoeba keratitis [Unknown]
